FAERS Safety Report 4854167-1 (Version None)
Quarter: 2005Q4

REPORT INFORMATION
  Report Type: 
  Country: None (occurrence: None)
  Receive Date: 20051213
  Receipt Date: 20051128
  Transmission Date: 20060501
  Serious: Yes (Hospitalization)
  Sender: FDA-Public Use
  Company Number: CIP05002589

PATIENT
  Age: 68 Year
  Sex: Female
  Weight: 65.3 kg

DRUGS (18)
  1. ACTONEL [Suspect]
     Indication: OSTEOPOROSIS
     Dosage: 35 MG, 1/WEEK, ORAL
     Route: 048
     Dates: start: 20050401, end: 20051001
  2. COUMADIN [Suspect]
     Dosage: SEE IMAGE
     Dates: end: 20051031
  3. COUMADIN [Suspect]
     Dosage: SEE IMAGE
     Dates: start: 20051031
  4. COUMADIN [Suspect]
     Dosage: SEE IMAGE
     Dates: start: 20051101
  5. PREDNISONE [Suspect]
     Dosage: 40 MG, DAILY, ORAL
     Route: 048
     Dates: start: 20051101
  6. CALTRATE + (VITAMIN D NOS, CALCIUM CARBONATE) [Concomitant]
  7. LORAZEPAM [Concomitant]
  8. METROCREAM (METRONIDAZOLE) CREAM [Concomitant]
  9. SYNTHROID [Concomitant]
  10. TIAZAC [Concomitant]
  11. TOPROL-XL [Concomitant]
  12. VIVELLE-DOT (ESTRADIOL) PATCH [Concomitant]
  13. BILBERRY (VACCINIUM MYRTILLUS) CAPSULE [Concomitant]
  14. VITAMIN B COMPLEX (CALCIUM PANTOTHENATE, NICOTINAMIDE, RIBOFLAVIN, THI [Concomitant]
  15. SELENIUM (SELENIUM) [Concomitant]
  16. MAGNESIUM (MAGNESIUM) [Concomitant]
  17. FLAXSEED OIL (LINUM USITATISSIMUM SEED OIL) [Concomitant]
  18. CHOLINE (CHOLINE) CAPSULE [Concomitant]

REACTIONS (31)
  - ASTHENIA [None]
  - ATRIAL FIBRILLATION [None]
  - AUTOIMMUNE HEPATITIS [None]
  - BLOOD PRESSURE DECREASED [None]
  - BLOOD UREA INCREASED [None]
  - CHOLECYSTITIS [None]
  - CHOLESTASIS [None]
  - CHROMATURIA [None]
  - CHRONIC SINUSITIS [None]
  - COAGULATION TIME PROLONGED [None]
  - DECREASED APPETITE [None]
  - DIZZINESS [None]
  - DYSPNOEA [None]
  - ERUCTATION [None]
  - FATIGUE [None]
  - GASTROOESOPHAGEAL REFLUX DISEASE [None]
  - HAEMATOMA [None]
  - HEADACHE [None]
  - HEPATIC NECROSIS [None]
  - HEPATITIS [None]
  - HIATUS HERNIA [None]
  - HYPERGLYCAEMIA [None]
  - HYPERHIDROSIS [None]
  - HYPOALBUMINAEMIA [None]
  - INFLAMMATION [None]
  - INTERNATIONAL NORMALISED RATIO INCREASED [None]
  - IRRITABILITY [None]
  - JAUNDICE [None]
  - NIGHT SWEATS [None]
  - OEDEMA [None]
  - RENAL CYST [None]
